FAERS Safety Report 9310428 (Version 2)
Quarter: 2013Q2

REPORT INFORMATION
  Report Type: Spontaneous
  Country: US (occurrence: US)
  Receive Date: 20130527
  Receipt Date: 20130530
  Transmission Date: 20140414
  Serious: No
  Sender: FDA-Public Use
  Company Number: US-PFIZER INC-2013161085

PATIENT
  Age: 53 Year
  Sex: Female
  Weight: 63.95 kg

DRUGS (2)
  1. CELEBREX [Suspect]
     Indication: ARTHRALGIA
     Dosage: 100 MG, 2X/DAY
     Dates: start: 20130517, end: 20130523
  2. LISINOPRIL [Concomitant]
     Indication: HYPERTENSION
     Dosage: 2.5 MG (HALF OF 5 MG TABLET), 1X/DAY

REACTIONS (1)
  - Drug ineffective [Unknown]
